FAERS Safety Report 5888353-9 (Version None)
Quarter: 2008Q3

REPORT INFORMATION
  Report Type: 
  Country: None (occurrence: None)
  Receive Date: 20080918
  Receipt Date: 20080704
  Transmission Date: 20090109
  Serious: Yes (Hospitalization)
  Sender: FDA-Public Use
  Company Number: GB-ROCHE-568319

PATIENT
  Age: 43 Year

DRUGS (2)
  1. XELODA [Suspect]
     Indication: BREAST CANCER
     Route: 048
     Dates: start: 20070622
  2. EPIRUBICIN [Concomitant]
     Indication: BREAST CANCER
     Dosage: RECEIVED 4 CYCLES
     Route: 065
     Dates: start: 20070301

REACTIONS (2)
  - COLITIS [None]
  - PROTEIN-LOSING GASTROENTEROPATHY [None]
